FAERS Safety Report 12932705 (Version 1)
Quarter: 2016Q4

REPORT INFORMATION
  Report Type: Spontaneous
  Country: JP (occurrence: JP)
  Receive Date: 20161111
  Receipt Date: 20161111
  Transmission Date: 20170207
  Serious: Yes (Hospitalization, Other)
  Sender: FDA-Public Use
  Company Number: JP-VIIV HEALTHCARE LIMITED-JP2016JPN164592

PATIENT
  Age: 65 Year
  Sex: Female
  Weight: 45 kg

DRUGS (2)
  1. ZEFIX [Suspect]
     Active Substance: LAMIVUDINE
     Indication: HEPATITIS B
     Dosage: 10 MG, 1D
     Route: 048
     Dates: start: 2000
  2. HEPSERA [Suspect]
     Active Substance: ADEFOVIR DIPIVOXIL
     Indication: HEPATITIS B
     Dosage: 10 MG, 1D
     Route: 048
     Dates: start: 200610

REACTIONS (10)
  - Arthralgia [Unknown]
  - Femoral neck fracture [Unknown]
  - Acquired aminoaciduria [Unknown]
  - Hypouricaemia [Unknown]
  - Osteomalacia [Unknown]
  - Fanconi syndrome acquired [Unknown]
  - Metabolic acidosis [Unknown]
  - Musculoskeletal chest pain [Unknown]
  - Renal glycosuria [Unknown]
  - Hypophosphataemia [Unknown]

NARRATIVE: CASE EVENT DATE: 201106
